FAERS Safety Report 10208054 (Version 1)
Quarter: 2014Q2

REPORT INFORMATION
  Report Type: Spontaneous
  Country: US (occurrence: US)
  Receive Date: 20140530
  Receipt Date: 20140530
  Transmission Date: 20141212
  Serious: No
  Sender: FDA-Public Use
  Company Number: US-BAYER-2014-070192

PATIENT
  Age: 71 Year
  Sex: Male
  Weight: 86 kg

DRUGS (8)
  1. ALEVE TABLET [Suspect]
     Indication: PYREXIA
     Dosage: 1 DF, PRN
     Route: 048
     Dates: start: 20140506, end: 20140508
  2. COUMADIN [Concomitant]
  3. PREDNISONE [Concomitant]
  4. TYLENOL [PARACETAMOL] [Concomitant]
  5. AXID [Concomitant]
  6. DOXYCYCLINE [Concomitant]
  7. ALLEGRA [Concomitant]
  8. ARANESP [Concomitant]

REACTIONS (7)
  - Headache [Recovered/Resolved]
  - Headache [Recovered/Resolved]
  - Insomnia [Recovered/Resolved]
  - Insomnia [Recovered/Resolved]
  - Vomiting [Recovered/Resolved]
  - Restlessness [Recovered/Resolved]
  - Restlessness [Recovered/Resolved]
